FAERS Safety Report 7197003-3 (Version None)
Quarter: 2010Q4

REPORT INFORMATION
  Report Type: 
  Country: None (occurrence: None)
  Receive Date: 20101224
  Receipt Date: 20101217
  Transmission Date: 20110411
  Serious: Yes (Hospitalization)
  Sender: FDA-Public Use
  Company Number: JP-PFIZER INC-2010145447

PATIENT
  Age: 28 Year
  Sex: Female
  Weight: 42 kg

DRUGS (1)
  1. ZITHROMAX [Suspect]
     Indication: PNEUMONIA PNEUMOCOCCAL
     Dosage: 500 MG, 1X/DAY
     Route: 048
     Dates: start: 20081023, end: 20081025

REACTIONS (1)
  - HEPATIC FUNCTION ABNORMAL [None]
